FAERS Safety Report 8443799-X (Version None)
Quarter: 2012Q2

REPORT INFORMATION
  Report Type: 
  Country: None (occurrence: None)
  Receive Date: 20120323
  Receipt Date: 20111121
  Transmission Date: 20120825
  Serious: Yes (Hospitalization)
  Sender: FDA-Public Use
  Company Number: 163-21880-11052743

PATIENT
  Age: 83 Year
  Sex: Female
  Weight: 45.3597 kg

DRUGS (8)
  1. LEVOBUNOLOL (LEVOBUNOLOL) [Concomitant]
  2. LIPITOR [Concomitant]
  3. REVLIMID [Suspect]
     Indication: MULTIPLE MYELOMA
     Dosage: 10 MG, DAILY X 28 DAYS, PO
     Route: 048
     Dates: start: 20110322, end: 20110814
  4. REVLIMID [Suspect]
     Indication: MULTIPLE MYELOMA
     Dosage: 10 MG, DAILY X 28 DAYS, PO
     Route: 048
     Dates: start: 20110822
  5. METOLAZONE [Concomitant]
  6. BUMEX [Concomitant]
  7. LEVOXYL [Concomitant]
  8. LEXAPRO [Concomitant]

REACTIONS (3)
  - FATIGUE [None]
  - LETHARGY [None]
  - SOMNOLENCE [None]
